FAERS Safety Report 22177160 (Version 4)
Quarter: 2023Q2

REPORT INFORMATION
  Report Type: Report from Study
  Country: US (occurrence: US)
  Receive Date: 20230405
  Receipt Date: 20230607
  Transmission Date: 20230722
  Serious: Yes (Other)
  Sender: FDA-Public Use
  Company Number: US-002147023-NVSC2023US079059

PATIENT
  Sex: Female

DRUGS (1)
  1. PIQRAY [Suspect]
     Active Substance: ALPELISIB
     Indication: Breast cancer
     Dosage: 150 MG, QD
     Route: 048
     Dates: start: 202303

REACTIONS (9)
  - Pneumonia [Unknown]
  - Cough [Unknown]
  - Pneumonitis [Unknown]
  - Pollakiuria [Unknown]
  - Abdominal discomfort [Unknown]
  - Thirst [Unknown]
  - Diarrhoea [Recovering/Resolving]
  - Fatigue [Unknown]
  - Muscle spasms [Unknown]
